FAERS Safety Report 5070533-6 (Version None)
Quarter: 2006Q3

REPORT INFORMATION
  Report Type: 
  Country: None (occurrence: None)
  Receive Date: 20060804
  Receipt Date: 20060529
  Transmission Date: 20061208
  Serious: Yes (Other)
  Sender: FDA-Public Use
  Company Number: PHBS2006JP08135

PATIENT

DRUGS (1)
  1. TEGRETOL [Suspect]
     Dosage: 200 MG/DAY
     Route: 048

REACTIONS (1)
  - HYPERPROLACTINAEMIA [None]
